APPROVED DRUG PRODUCT: HYDROMOX R
Active Ingredient: QUINETHAZONE; RESERPINE
Strength: 50MG;0.125MG
Dosage Form/Route: TABLET;ORAL
Application: N013927 | Product #001
Applicant: LEDERLE LABORATORIES DIV AMERICAN CYANAMID CO
Approved: Approved Prior to Jan 1, 1982 | RLD: No | RS: No | Type: DISCN